FAERS Safety Report 8492746-3 (Version None)
Quarter: 2012Q2

REPORT INFORMATION
  Report Type: 
  Country: None (occurrence: None)
  Receive Date: 20120628
  Receipt Date: 20120622
  Transmission Date: 20120825
  Serious: Yes (Other)
  Sender: FDA-Public Use
  Company Number: A0976680A

PATIENT
  Sex: Female

DRUGS (2)
  1. METHYLCELLULOSE (FORMULATION UNKNOWN) (METHYLCELLULOSE) [Suspect]
  2. METHYLCELLULOSE (FORMULATION UNKNOWN) (METHYLCELLULOSE) [Suspect]

REACTIONS (7)
  - PAIN [None]
  - ADVERSE EVENT [None]
  - MALAISE [None]
  - ABDOMINAL PAIN UPPER [None]
  - HAEMORRHAGE [None]
  - DYSPEPSIA [None]
  - DRUG INEFFECTIVE [None]
